FAERS Safety Report 8167556-7 (Version None)
Quarter: 2012Q1

REPORT INFORMATION
  Report Type: 
  Country: None (occurrence: None)
  Receive Date: 20120222
  Receipt Date: 20120206
  Transmission Date: 20120608
  Serious: No
  Sender: FDA-Public Use
  Company Number: OPER20120062

PATIENT
  Age: 72 Year
  Sex: Female

DRUGS (14)
  1. VYTORIN (SIMVASTATIN, EZETIMIBE) (SIMVASTATIN, EZETIMIBE) [Concomitant]
  2. TRAZODONE (TRAZODONE) (TRAZODONE) [Concomitant]
  3. SKELAXIN (METAXALONE) (METAXALONE) [Concomitant]
  4. CALCIUM WITH VITAMIN D (COLECALCIFEROL, CALCIUM) (COLECALCIFEROL, CALC [Concomitant]
  5. PRILOSEC (OMEPRAZOLE) (OMEPRAZOLE) [Concomitant]
  6. FOSAMAX [Concomitant]
  7. OPANA ER [Suspect]
  8. CELEXA (CITALOPRAM HYDROBROMDE) (CITALOPRAM HYDROBROMIDE) [Concomitant]
  9. COREG (CARVEDILOL) (CARVEDILOL) [Concomitant]
  10. FUROSEMIDE [Concomitant]
  11. LEVOTHYROXINE SODIUM [Concomitant]
  12. ACYCLOVIR (ACICLOVIR) (ACICLOVIR) [Concomitant]
  13. OPANA ER [Suspect]
     Indication: PAIN
     Dosage: 40 MG, ORAL
     Route: 048
  14. OPANA [Suspect]
     Indication: PAIN
     Dosage: 10 MG, ORAL
     Route: 048

REACTIONS (7)
  - INADEQUATE ANALGESIA [None]
  - WITHDRAWAL SYNDROME [None]
  - PRODUCT MEASURED POTENCY ISSUE [None]
  - DRUG TOLERANCE [None]
  - ABDOMINAL PAIN [None]
  - PRODUCT QUALITY ISSUE [None]
  - FEELING OF BODY TEMPERATURE CHANGE [None]
